FAERS Safety Report 9514914 (Version 1)
Quarter: 2013Q3

REPORT INFORMATION
  Report Type: Spontaneous
  Country: US (occurrence: US)
  Receive Date: 20130911
  Receipt Date: 20130911
  Transmission Date: 20140515
  Serious: Yes (Death)
  Sender: FDA-Public Use
  Company Number: US-SANOFI-AVENTIS-2013SA089370

PATIENT
  Age: 64 Year
  Sex: Male

DRUGS (4)
  1. LANTUS [Suspect]
     Indication: TYPE 2 DIABETES MELLITUS
     Route: 065
     Dates: start: 2006, end: 2008
  2. LANTUS SOLOSTAR [Suspect]
     Indication: TYPE 2 DIABETES MELLITUS
     Route: 065
  3. PREDNISONE [Suspect]
     Route: 065
  4. SOLOSTAR [Concomitant]

REACTIONS (2)
  - Bone cancer [Fatal]
  - Substance-induced psychotic disorder [Fatal]
